FAERS Safety Report 12824795 (Version 3)
Quarter: 2016Q4

REPORT INFORMATION
  Report Type: Spontaneous
  Country: JP (occurrence: JP)
  Receive Date: 20161007
  Receipt Date: 20161025
  Transmission Date: 20170207
  Serious: Yes (Hospitalization, Other)
  Sender: FDA-Public Use
  Company Number: JP-PFIZER INC-2016465043

PATIENT
  Age: 79 Year
  Sex: Male
  Weight: 63 kg

DRUGS (1)
  1. BOSULIF [Suspect]
     Active Substance: BOSUTINIB MONOHYDRATE
     Indication: CHRONIC MYELOID LEUKAEMIA
     Dosage: 300 MG, DAILY
     Route: 048

REACTIONS (2)
  - Renal impairment [Unknown]
  - Cerebral infarction [Unknown]

NARRATIVE: CASE EVENT DATE: 201609
